FAERS Safety Report 7307861-7 (Version None)
Quarter: 2011Q1

REPORT INFORMATION
  Report Type: 
  Country: None (occurrence: None)
  Receive Date: 20110223
  Receipt Date: 20110216
  Transmission Date: 20110831
  Serious: Yes (Other)
  Sender: FDA-Public Use
  Company Number: US-JNJFOC-20110205719

PATIENT
  Age: 66 Year
  Sex: Female

DRUGS (4)
  1. ROBAXIN [Concomitant]
     Route: 065
  2. NUCYNTA [Suspect]
     Indication: PAIN
     Route: 065
  3. NUCYNTA [Suspect]
     Route: 065
  4. EFFEXOR [Concomitant]
     Route: 065

REACTIONS (3)
  - PHARYNGEAL OEDEMA [None]
  - EYE SWELLING [None]
  - SWOLLEN TONGUE [None]
